FAERS Safety Report 6781079-9 (Version None)
Quarter: 2010Q2

REPORT INFORMATION
  Report Type: 
  Country: None (occurrence: None)
  Receive Date: 20100621
  Receipt Date: 20100609
  Transmission Date: 20101027
  Serious: Yes (Death, Hospitalization)
  Sender: FDA-Public Use
  Company Number: RS-SANOFI-AVENTIS-2010SA033949

PATIENT
  Age: 80 Year
  Sex: Male
  Weight: 90 kg

DRUGS (13)
  1. SIMVASTATIN [Interacting]
     Route: 065
  2. SIMVASTATIN [Interacting]
     Route: 065
  3. DANAZOL [Suspect]
     Indication: IDIOPATHIC THROMBOCYTOPENIC PURPURA
     Route: 065
  4. DANAZOL [Interacting]
     Route: 065
  5. DANAZOL [Interacting]
     Route: 065
  6. ASPIRIN [Concomitant]
     Route: 065
  7. ASPIRIN [Concomitant]
     Route: 065
  8. CLOPIDOGREL [Concomitant]
     Route: 065
  9. CLOPIDOGREL [Concomitant]
     Route: 065
  10. RAMIPRIL [Concomitant]
     Indication: DRUG USE FOR UNKNOWN INDICATION
     Route: 065
  11. PANTOPRAZOLE [Concomitant]
     Indication: DRUG USE FOR UNKNOWN INDICATION
     Route: 065
  12. PREDNISONE [Concomitant]
     Indication: DRUG USE FOR UNKNOWN INDICATION
     Route: 065
  13. INSULIN [Concomitant]
     Indication: DRUG USE FOR UNKNOWN INDICATION
     Route: 065

REACTIONS (3)
  - DRUG INTERACTION [None]
  - RENAL FAILURE ACUTE [None]
  - RHABDOMYOLYSIS [None]
